FAERS Safety Report 11156172 (Version 1)
Quarter: 2015Q2

REPORT INFORMATION
  Report Type: Spontaneous
  Country: FI (occurrence: FI)
  Receive Date: 20150602
  Receipt Date: 20150602
  Transmission Date: 20150821
  Serious: Yes (Disabling)
  Sender: FDA-Public Use
  Company Number: PHHY2015FI062076

PATIENT
  Age: 40 Year
  Sex: Female

DRUGS (6)
  1. AZITHROMYCIN [Suspect]
     Active Substance: AZITHROMYCIN ANHYDROUS
     Indication: MENINGEAL NEOPLASM
     Dosage: 500 MG, QD
     Route: 048
     Dates: start: 20150302, end: 20150304
  2. FLAVAMED [Concomitant]
     Active Substance: AMBROXOL
     Indication: SECRETION DISCHARGE
     Dosage: 1 DF, TID, 3 DAYS AND 1 DF TILL THE END OF TREATMENT TO REMOVE MUCUS
     Dates: start: 20150220
  3. AZITHROMYCIN [Suspect]
     Active Substance: AZITHROMYCIN ANHYDROUS
     Indication: ACUTE SINUSITIS
  4. DUACT [Concomitant]
     Active Substance: ACRIVASTINE\PSEUDOEPHEDRINE HYDROCHLORIDE
     Indication: INFLUENZA
     Dosage: 1 DF, TID
     Route: 048
     Dates: start: 20150220
  5. BUVENTOL [Concomitant]
     Indication: ACUTE SINUSITIS
     Route: 055
     Dates: start: 20150306, end: 20150315
  6. DUACT [Concomitant]
     Active Substance: ACRIVASTINE\PSEUDOEPHEDRINE HYDROCHLORIDE
     Indication: ACUTE SINUSITIS
     Dosage: 1 DF, TID
     Route: 048
     Dates: start: 20150306, end: 20150313

REACTIONS (9)
  - Headache [Not Recovered/Not Resolved]
  - Insomnia [Not Recovered/Not Resolved]
  - Fatigue [Not Recovered/Not Resolved]
  - Nausea [Not Recovered/Not Resolved]
  - Tinnitus [Not Recovered/Not Resolved]
  - Dizziness [Not Recovered/Not Resolved]
  - General physical health deterioration [Not Recovered/Not Resolved]
  - Drug ineffective [Not Recovered/Not Resolved]
  - Tremor [Not Recovered/Not Resolved]

NARRATIVE: CASE EVENT DATE: 20150303
